FAERS Safety Report 4976418-5 (Version None)
Quarter: 2006Q2

REPORT INFORMATION
  Report Type: 
  Country: None (occurrence: None)
  Receive Date: 20060412
  Receipt Date: 20060331
  Transmission Date: 20061013
  Serious: Yes (Other)
  Sender: FDA-Public Use
  Company Number: 06-0045PO

PATIENT
  Sex: Female

DRUGS (2)
  1. PONSTEL [Suspect]
     Indication: ABDOMINAL PAIN
     Dosage: 500 MG, ONCE, ORAL
     Route: 048
     Dates: start: 20060301
  2. PONSTEL [Suspect]
     Indication: HEADACHE
     Dosage: 500 MG, ONCE, ORAL
     Route: 048
     Dates: start: 20060301

REACTIONS (3)
  - ABDOMINAL PAIN UPPER [None]
  - HEADACHE [None]
  - VOMITING [None]
